FAERS Safety Report 20531281 (Version 2)
Quarter: 2022Q1

REPORT INFORMATION
  Report Type: Spontaneous
  Country: US (occurrence: US)
  Receive Date: 20220301
  Receipt Date: 20220323
  Transmission Date: 20220423
  Serious: Yes (Other)
  Sender: FDA-Public Use
  Company Number: US-GSKCCFUS-Case-01307304_AE-76116

PATIENT
  Age: 50 Year
  Sex: Female

DRUGS (1)
  1. SOTROVIMAB [Suspect]
     Active Substance: SOTROVIMAB
     Indication: Product used for unknown indication
     Dosage: 500 MG

REACTIONS (13)
  - Near death experience [Unknown]
  - Suicidal ideation [Unknown]
  - Mutagenic effect [Unknown]
  - Pyrexia [Unknown]
  - Headache [Unknown]
  - Productive cough [Unknown]
  - Tongue disorder [Unknown]
  - Abdominal pain upper [Unknown]
  - Decreased appetite [Unknown]
  - Abdominal discomfort [Unknown]
  - Asthenia [Unknown]
  - Drug intolerance [Unknown]
  - Drug ineffective [Unknown]
